FAERS Safety Report 6510056-8 (Version None)
Quarter: 2009Q4

REPORT INFORMATION
  Report Type: 
  Country: None (occurrence: None)
  Receive Date: 20091222
  Receipt Date: 20090828
  Transmission Date: 20100525
  Serious: No
  Sender: FDA-Public Use
  Company Number: US-BAUSCH-2009BL004449

PATIENT
  Age: 29 Year
  Sex: Female

DRUGS (3)
  1. BESIVANCE [Suspect]
     Indication: POSTOPERATIVE CARE
     Route: 047
     Dates: start: 20090821, end: 20090822
  2. BESIVANCE [Suspect]
     Indication: OFF LABEL USE
     Route: 047
     Dates: start: 20090821, end: 20090822
  3. BESIVANCE [Suspect]
     Indication: PREOPERATIVE CARE
     Route: 047
     Dates: start: 20090821, end: 20090822

REACTIONS (5)
  - CORNEAL DEPOSITS [None]
  - CORNEAL OEDEMA [None]
  - CORNEAL OPACITY [None]
  - OCULAR DISCOMFORT [None]
  - VISUAL ACUITY REDUCED [None]
